APPROVED DRUG PRODUCT: BETAMETHASONE ACETATE AND BETAMETHASONE SODIUM PHOSPHATE
Active Ingredient: BETAMETHASONE ACETATE; BETAMETHASONE SODIUM PHOSPHATE
Strength: 3MG/ML;EQ 3MG BASE/ML
Dosage Form/Route: INJECTABLE;INJECTION
Application: A077838 | Product #001 | TE Code: AB
Applicant: HIKMA FARMACEUTICA PORTUGAL SA
Approved: Jan 17, 2023 | RLD: No | RS: No | Type: RX